FAERS Safety Report 16994890 (Version 2)
Quarter: 2019Q4

REPORT INFORMATION
  Report Type: Spontaneous
  Country: DE (occurrence: DE)
  Receive Date: 20191105
  Receipt Date: 20191210
  Transmission Date: 20200122
  Serious: Yes (Death)
  Sender: FDA-Public Use
  Company Number: DE-PFIZER INC-2019477232

PATIENT
  Sex: Female

DRUGS (3)
  1. ZOLPIDEM [Suspect]
     Active Substance: ZOLPIDEM TARTRATE
     Dosage: 1 DF, AS NEEDED WHEN GOING TO SLEEP
     Route: 065
     Dates: start: 200702
  2. DORMICUM [MIDAZOLAM] [Suspect]
     Active Substance: MIDAZOLAM HYDROCHLORIDE
     Dosage: 1 DF, 1X/DAY (0-0-1)
     Route: 065
     Dates: start: 200702
  3. ALPRAZOLAM. [Suspect]
     Active Substance: ALPRAZOLAM
     Dosage: 1 DF, 2X/DAY
     Route: 065
     Dates: start: 200702

REACTIONS (1)
  - Neoplasm malignant [Fatal]
